FAERS Safety Report 7070993-5 (Version None)
Quarter: 2010Q4

REPORT INFORMATION
  Report Type: 
  Country: None (occurrence: None)
  Receive Date: 20101029
  Receipt Date: 20101027
  Transmission Date: 20110411
  Serious: Yes (Other)
  Sender: FDA-Public Use
  Company Number: US-BRISTOL-MYERS SQUIBB COMPANY-15353386

PATIENT
  Sex: Female

DRUGS (2)
  1. ABILIFY [Suspect]
  2. VIMPAT [Suspect]

REACTIONS (1)
  - BIPOLAR DISORDER [None]
